FAERS Safety Report 8110467-3 (Version None)
Quarter: 2012Q1

REPORT INFORMATION
  Report Type: 
  Country: None (occurrence: None)
  Receive Date: 20120202
  Receipt Date: 20120124
  Transmission Date: 20120608
  Serious: Yes (Death)
  Sender: FDA-Public Use
  Company Number: HU-TEVA-313836ISR

PATIENT
  Age: 55 Year
  Sex: Male

DRUGS (11)
  1. POTASSIUM CHLORIDE [Concomitant]
     Indication: PREMEDICATION
     Dates: start: 20111130, end: 20111204
  2. ONDANSETRON HCL [Concomitant]
     Indication: PREMEDICATION
     Dates: start: 20111130, end: 20111204
  3. FUROSEMIDE [Concomitant]
     Indication: PREMEDICATION
     Dates: start: 20111130, end: 20111130
  4. CISPLATIN [Suspect]
     Indication: METASTATIC GASTRIC CANCER
     Dosage: 131.2 MILLIGRAM; CYCLE 1
     Route: 041
     Dates: start: 20111130, end: 20111130
  5. SEDUXEN [Concomitant]
     Indication: ANXIETY
     Dates: start: 20111204, end: 20111204
  6. FRONTIN [Concomitant]
     Indication: ANXIETY
     Dates: start: 20111204, end: 20111204
  7. TRAMADOL HCL [Concomitant]
     Indication: GASTROINTESTINAL PAIN
     Dates: start: 20111118
  8. CERUCAL [Concomitant]
     Indication: NAUSEA
     Dates: start: 20111203, end: 20111204
  9. FLUOROURACIL [Suspect]
     Indication: METASTATIC GASTRIC CANCER
     Dosage: 1312 MILLIGRAM; CYCLE 1, FOR DAY 1-5 EVERY 21 DAYS
     Route: 041
     Dates: start: 20111130, end: 20111204
  10. MGCL [Concomitant]
     Indication: PREMEDICATION
     Dates: start: 20111130, end: 20111204
  11. QUAMATEL [Concomitant]
     Indication: PROPHYLAXIS

REACTIONS (1)
  - CYTOTOXIC CARDIOMYOPATHY [None]
